FAERS Safety Report 19264458 (Version 1)
Quarter: 2021Q2

REPORT INFORMATION
  Report Type: Spontaneous
  Country: US (occurrence: US)
  Receive Date: 20210517
  Receipt Date: 20210517
  Transmission Date: 20210717
  Serious: No
  Sender: FDA-Public Use
  Company Number: None

PATIENT

DRUGS (1)
  1. LIP CLEAR LYSINE PLUS [Suspect]
     Active Substance: MENTHOL

REACTIONS (1)
  - Product label issue [None]

NARRATIVE: CASE EVENT DATE: 20210517
